FAERS Safety Report 14579063 (Version 2)
Quarter: 2018Q1

REPORT INFORMATION
  Report Type: Spontaneous
  Country: US (occurrence: US)
  Receive Date: 20180227
  Receipt Date: 20180306
  Transmission Date: 20180509
  Serious: Yes (Death, Hospitalization, Other)
  Sender: FDA-Public Use
  Company Number: US-GILEAD-2018-0322597

PATIENT
  Age: 69 Year
  Sex: Female

DRUGS (1)
  1. AMBRISENTAN [Suspect]
     Active Substance: AMBRISENTAN
     Indication: LUNG DISORDER
     Route: 065

REACTIONS (5)
  - Oedema [Unknown]
  - Dyspnoea [Unknown]
  - Death [Fatal]
  - Lung disorder [Unknown]
  - Organ failure [Unknown]
